FAERS Safety Report 4461627-4 (Version None)
Quarter: 2004Q3

REPORT INFORMATION
  Report Type: 
  Country: None (occurrence: None)
  Receive Date: 20040929
  Receipt Date: 20031127
  Transmission Date: 20050211
  Serious: Yes (Disabling)
  Sender: FDA-Public Use
  Company Number: 200313065DE

PATIENT
  Age: 62 Year
  Sex: Female

DRUGS (4)
  1. TAXOTERE [Suspect]
     Indication: BREAST CANCER
     Route: 042
     Dates: start: 20030701, end: 20030901
  2. EPIRUBICIN [Concomitant]
     Dates: start: 20030411, end: 20030601
  3. CYCLOPHOSPHAMIDE [Concomitant]
     Dates: start: 20030411, end: 20030601
  4. DEXAMETHASONE [Concomitant]
     Dates: start: 20030701, end: 20030901

REACTIONS (9)
  - BLOOD GLUCOSE INCREASED [None]
  - BONE PAIN [None]
  - BRONCHITIS ACUTE [None]
  - DIABETIC RETINAL OEDEMA [None]
  - IMPAIRED DRIVING ABILITY [None]
  - LYMPHOCYTE COUNT DECREASED [None]
  - MYALGIA [None]
  - OEDEMA [None]
  - VISUAL DISTURBANCE [None]
